FAERS Safety Report 20187041 (Version 1)
Quarter: 2021Q4

REPORT INFORMATION
  Report Type: Spontaneous
  Country: CN (occurrence: None)
  Receive Date: 20211215
  Receipt Date: 20211215
  Transmission Date: 20220304
  Serious: Yes (Other)
  Sender: FDA-Public Use
  Company Number: CN-ROCHE-2978218

PATIENT
  Age: 41 Year
  Sex: Male

DRUGS (24)
  1. MABTHERA [Suspect]
     Active Substance: RITUXIMAB
     Indication: Diffuse large B-cell lymphoma
     Dosage: ON DAY 3
     Route: 065
     Dates: start: 20210605
  2. MABTHERA [Suspect]
     Active Substance: RITUXIMAB
     Dosage: ON DAY 0
     Route: 065
     Dates: start: 20210621
  3. MABTHERA [Suspect]
     Active Substance: RITUXIMAB
     Dosage: ON DAY 1
     Route: 065
     Dates: start: 20210711
  4. MABTHERA [Suspect]
     Active Substance: RITUXIMAB
     Dosage: ON DAY 0
     Route: 065
     Dates: start: 20210802
  5. MABTHERA [Suspect]
     Active Substance: RITUXIMAB
     Dosage: ON DAY 0
     Route: 065
     Dates: start: 20210817
  6. CYCLOPHOSPHAMIDE [Concomitant]
     Active Substance: CYCLOPHOSPHAMIDE
     Indication: Diffuse large B-cell lymphoma
     Dosage: ON DAY 2
     Dates: start: 20210605
  7. CYCLOPHOSPHAMIDE [Concomitant]
     Active Substance: CYCLOPHOSPHAMIDE
     Dosage: FROM DAY 1 TO DAY 3?SUBSEQUENT DOSE: 02-AUG-2021
     Dates: start: 20210621
  8. CYCLOPHOSPHAMIDE [Concomitant]
     Active Substance: CYCLOPHOSPHAMIDE
     Dosage: FROM DAY 1 TO DAY 2
     Dates: start: 20210829
  9. DOXORUBICIN HYDROCHLORIDE [Concomitant]
     Active Substance: DOXORUBICIN HYDROCHLORIDE
     Indication: Diffuse large B-cell lymphoma
     Dosage: ON DAY 2
     Dates: start: 20210605
  10. DOXORUBICIN HYDROCHLORIDE [Concomitant]
     Active Substance: DOXORUBICIN HYDROCHLORIDE
     Dosage: ON DAY 5
     Dates: start: 20210621
  11. DOXORUBICIN HYDROCHLORIDE [Concomitant]
     Active Substance: DOXORUBICIN HYDROCHLORIDE
     Dosage: ON DAY 5
     Dates: start: 20210802
  12. VINDESINE [Concomitant]
     Active Substance: VINDESINE
     Indication: Diffuse large B-cell lymphoma
     Dosage: ON DAY 2?SUBSEQUENT DOSE: 12-JUN-2021 (AT 4 MG PER DAY FOR 1 DAY), 21-JUN-2021 AND 02-AUG-2021 (ON D
     Dates: start: 20210605
  13. DEXAMETHASONE [Concomitant]
     Active Substance: DEXAMETHASONE
     Indication: Diffuse large B-cell lymphoma
     Dosage: FROM DAY 1 TO DAY 5
     Dates: start: 20210605
  14. DEXAMETHASONE [Concomitant]
     Active Substance: DEXAMETHASONE
     Dosage: FROM DAY 1 TO DAY 4, FROM DAY 11 TO DAY 14?NEXT DOSE 02-AUG-2021
     Dates: start: 20210621
  15. ETOPOSIDE [Concomitant]
     Active Substance: ETOPOSIDE
     Indication: Diffuse large B-cell lymphoma
     Dosage: FROM DAY 1 TO DAY 3
     Dates: start: 20210605
  16. ETOPOSIDE [Concomitant]
     Active Substance: ETOPOSIDE
     Dosage: FOR 2 DAYS
     Dates: start: 20210612
  17. METHOTREXATE [Concomitant]
     Active Substance: METHOTREXATE
     Indication: Diffuse large B-cell lymphoma
     Dosage: ON DAY 2?START DATE (B.4.K.12B/G.K.4.R.4) 11-JUL-2021
     Dates: start: 20210711
  18. METHOTREXATE [Concomitant]
     Active Substance: METHOTREXATE
     Dosage: ON DAY 1
     Dates: start: 20210817
  19. CYTARABINE [Concomitant]
     Active Substance: CYTARABINE
     Indication: Diffuse large B-cell lymphoma
     Dosage: FROM DAY 3 TO DAY 4
     Dates: start: 20210711
  20. MESNA [Concomitant]
     Active Substance: MESNA
     Indication: Diffuse large B-cell lymphoma
     Dosage: AT 1.14G PER DAY
     Dates: start: 20210711
  21. FLUDARABINE [Concomitant]
     Active Substance: FLUDARABINE PHOSPHATE
     Indication: Diffuse large B-cell lymphoma
     Dosage: FROM DAY 1 TO DAY 3
     Dates: start: 20210829
  22. ZANUBRUTINIB [Concomitant]
     Active Substance: ZANUBRUTINIB
     Indication: Diffuse large B-cell lymphoma
     Dosage: SUBSEQUENT DOSE: 11-SEP-2021
     Dates: start: 20210902
  23. LENALIDOMIDE [Concomitant]
     Active Substance: LENALIDOMIDE
     Indication: Diffuse large B-cell lymphoma
     Dates: start: 20210911
  24. CISPLATIN [Concomitant]
     Active Substance: CISPLATIN
     Indication: Diffuse large B-cell lymphoma

REACTIONS (2)
  - Myelosuppression [Unknown]
  - Drug ineffective [Unknown]
